FAERS Safety Report 10051297 (Version 1)
Quarter: 2014Q2

REPORT INFORMATION
  Report Type: Spontaneous
  Country: US (occurrence: US)
  Receive Date: 20140401
  Receipt Date: 20140401
  Transmission Date: 20141212
  Serious: No
  Sender: FDA-Public Use
  Company Number: US-PFIZER INC-2014089018

PATIENT
  Age: 41 Year
  Sex: Female

DRUGS (1)
  1. CAMPTOSAR [Suspect]
     Indication: GASTRIC CANCER
     Dosage: 368 MG, UNK
     Dates: start: 20130813

REACTIONS (2)
  - Disease progression [Unknown]
  - Gastric cancer [Unknown]
